FAERS Safety Report 11044714 (Version 2)
Quarter: 2015Q2

REPORT INFORMATION
  Report Type: Report from Study
  Country: AU (occurrence: AU)
  Receive Date: 20150417
  Receipt Date: 20150514
  Transmission Date: 20150821
  Serious: Yes (Hospitalization, Other)
  Sender: FDA-Public Use
  Company Number: AU-JNJFOC-20150411533

PATIENT
  Age: 34 Year
  Sex: Female
  Weight: 64 kg

DRUGS (2)
  1. REMICADE [Suspect]
     Active Substance: INFLIXIMAB
     Indication: SAPHO SYNDROME
     Route: 042
     Dates: start: 2010
  2. REMICADE [Suspect]
     Active Substance: INFLIXIMAB
     Indication: SAPHO SYNDROME
     Route: 042

REACTIONS (6)
  - Therapeutic response unexpected [Unknown]
  - Meningitis herpes [Recovered/Resolved]
  - Psoriasis [Unknown]
  - Product use issue [Unknown]
  - Weight increased [Unknown]
  - Drug effect decreased [Unknown]

NARRATIVE: CASE EVENT DATE: 2010
